FAERS Safety Report 15866241 (Version 2)
Quarter: 2019Q2

REPORT INFORMATION
  Report Type: Spontaneous
  Country: US (occurrence: US)
  Receive Date: 20190125
  Receipt Date: 20190628
  Transmission Date: 20190711
  Serious: No
  Sender: FDA-Public Use
  Company Number: US-PFIZER INC-2019031767

PATIENT
  Age: 63 Year

DRUGS (1)
  1. LYRICA [Suspect]
     Active Substance: PREGABALIN
     Dosage: 400 MG, DAILY

REACTIONS (5)
  - Withdrawal syndrome [Unknown]
  - Neuralgia [Unknown]
  - Mental disorder [Unknown]
  - Intentional product use issue [Unknown]
  - Blood pressure increased [Unknown]
